FAERS Safety Report 10733119 (Version 1)
Quarter: 2015Q1

REPORT INFORMATION
  Report Type: Report from Study
  Country: US (occurrence: US)
  Receive Date: 20150123
  Receipt Date: 20150123
  Transmission Date: 20150721
  Serious: Yes (Congenital Anomaly)
  Sender: FDA-Public Use
  Company Number: US-JNJFOC-20150113336

PATIENT

DRUGS (4)
  1. STELARA [Suspect]
     Active Substance: USTEKINUMAB
     Indication: PSORIASIS
     Dosage: 1 SHOT PER DAY, MOTHER^S DOSING
     Route: 064
     Dates: start: 20131115, end: 20131115
  2. VITAMIN B12 [Concomitant]
     Active Substance: CYANOCOBALAMIN
     Route: 048
     Dates: start: 20131208, end: 20140306
  3. PRENATAL VITAMIN [Concomitant]
     Active Substance: VITAMINS
     Dosage: 1 PILL
     Route: 048
     Dates: start: 20131208, end: 20140306
  4. VITAMIN D [Concomitant]
     Active Substance: CHOLECALCIFEROL
     Route: 048
     Dates: start: 20131208, end: 20140306

REACTIONS (2)
  - Foetal exposure during pregnancy [Unknown]
  - Exomphalos [Unknown]
